FAERS Safety Report 8288361-7 (Version None)
Quarter: 2012Q2

REPORT INFORMATION
  Report Type: 
  Country: None (occurrence: None)
  Receive Date: 20120416
  Receipt Date: 20120410
  Transmission Date: 20120825
  Serious: Yes (Other)
  Sender: FDA-Public Use
  Company Number: US-PFIZER INC-2012090181

PATIENT
  Sex: Male

DRUGS (7)
  1. LYRICA [Suspect]
     Dosage: 100 UNK, 2X/DAY
     Route: 048
  2. OXYCODONE [Concomitant]
     Dosage: UNK
  3. VIAGRA [Concomitant]
     Dosage: UNK
  4. KLONOPIN [Concomitant]
     Dosage: UNK
  5. METFORMIN [Concomitant]
     Dosage: UNK
  6. METHADONE [Concomitant]
     Dosage: UNK
  7. MORPHINE SULFATE [Concomitant]
     Dosage: UNK

REACTIONS (3)
  - POST LAMINECTOMY SYNDROME [None]
  - PAIN [None]
  - IMPAIRED WORK ABILITY [None]
